FAERS Safety Report 13263965 (Version 1)
Quarter: 2017Q1

REPORT INFORMATION
  Report Type: Spontaneous
  Country: US (occurrence: US)
  Receive Date: 20170223
  Receipt Date: 20170223
  Transmission Date: 20170428
  Serious: No
  Sender: FDA-Public Use
  Company Number: US-BIOGEN-2017BI00358463

PATIENT
  Sex: Female

DRUGS (1)
  1. PLEGRIDY [Suspect]
     Active Substance: PEGINTERFERON BETA-1A
     Indication: MULTIPLE SCLEROSIS
     Route: 065
     Dates: start: 20170201

REACTIONS (7)
  - Discomfort [Unknown]
  - Hypersensitivity [Unknown]
  - Chills [Unknown]
  - Nausea [Unknown]
  - Restlessness [Unknown]
  - General symptom [Unknown]
  - Middle insomnia [Unknown]
